FAERS Safety Report 9054387 (Version 1)
Quarter: 2013Q1

REPORT INFORMATION
  Report Type: Spontaneous
  Country: US (occurrence: US)
  Receive Date: 20130208
  Receipt Date: 20130208
  Transmission Date: 20140127
  Serious: No
  Sender: FDA-Public Use
  Company Number: US-GLAXOSMITHKLINE-A0975963A

PATIENT
  Sex: Female

DRUGS (2)
  1. PAROXETINE [Suspect]
     Dosage: 25MG PER DAY
     Route: 048
  2. PAXIL CR [Suspect]
     Dosage: 25MG PER DAY
     Route: 048

REACTIONS (3)
  - Anger [Unknown]
  - Agitation [Unknown]
  - Product quality issue [Unknown]
